FAERS Safety Report 24178036 (Version 3)
Quarter: 2024Q3

REPORT INFORMATION
  Report Type: Spontaneous
  Country: US (occurrence: US)
  Receive Date: 20240806
  Receipt Date: 20240919
  Transmission Date: 20241016
  Serious: No
  Sender: SANOFI AVENTIS
  Company Number: US-SA-SAC20240801000616

PATIENT
  Age: 33 Year
  Sex: Female
  Weight: 61.6 kg

DRUGS (6)
  1. TZIELD [Suspect]
     Active Substance: TEPLIZUMAB-MZWV
     Indication: Diabetes prophylaxis
     Dosage: 115.05 UG, 1X
     Route: 042
     Dates: start: 20240726, end: 20240726
  2. TZIELD [Suspect]
     Active Substance: TEPLIZUMAB-MZWV
     Dosage: 221 UG, 1X
     Route: 042
     Dates: start: 20240727, end: 20240727
  3. TZIELD [Suspect]
     Active Substance: TEPLIZUMAB-MZWV
     Dosage: 442 UG, 1X
     Route: 042
     Dates: start: 20240728, end: 20240728
  4. TZIELD [Suspect]
     Active Substance: TEPLIZUMAB-MZWV
     Dosage: 885 UG, 1X
     Route: 042
     Dates: start: 20240729, end: 20240729
  5. TZIELD [Suspect]
     Active Substance: TEPLIZUMAB-MZWV
     Dosage: 1823.1 UG
     Route: 042
     Dates: start: 20240730, end: 20240808
  6. IBUPROFEN [Concomitant]
     Active Substance: IBUPROFEN
     Indication: Premedication
     Dosage: 400 MG, QD
     Dates: start: 20240726, end: 20240808

REACTIONS (2)
  - Diarrhoea [Unknown]
  - Rash erythematous [Unknown]

NARRATIVE: CASE EVENT DATE: 20240730
